FAERS Safety Report 21890385 (Version 3)
Quarter: 2023Q1

REPORT INFORMATION
  Report Type: Spontaneous
  Country: CN (occurrence: CN)
  Receive Date: 20230120
  Receipt Date: 20230127
  Transmission Date: 20230418
  Serious: Yes (Other)
  Sender: FDA-Public Use
  Company Number: CN-PFIZER INC-PV202300012012

PATIENT
  Age: 22 Year
  Sex: Female

DRUGS (4)
  1. MEROPENEM [Suspect]
     Active Substance: MEROPENEM
     Indication: Pneumonia
     Dosage: 1 G, 3X/DAY
     Route: 042
     Dates: start: 2021
  2. MEROPENEM [Suspect]
     Active Substance: MEROPENEM
     Indication: Aplastic anaemia
  3. VORICONAZOLE [Concomitant]
     Active Substance: VORICONAZOLE
     Indication: Aplastic anaemia
     Dosage: 200 MG, Q12H
     Route: 048
     Dates: start: 2021
  4. VORICONAZOLE [Concomitant]
     Active Substance: VORICONAZOLE
     Indication: Pneumonia

REACTIONS (1)
  - Epilepsy [Recovered/Resolved]
